FAERS Safety Report 18278635 (Version 1)
Quarter: 2020Q3

REPORT INFORMATION
  Report Type: Spontaneous
  Country: FR (occurrence: FR)
  Receive Date: 20200917
  Receipt Date: 20200917
  Transmission Date: 20201103
  Serious: Yes (Hospitalization)
  Sender: FDA-Public Use
  Company Number: NVSC2020FR250799

PATIENT
  Age: 65 Year
  Sex: Female
  Weight: 110 kg

DRUGS (4)
  1. TRAMADOL. [Suspect]
     Active Substance: TRAMADOL
     Indication: PAIN
     Dosage: 3 DF, TOTAL
     Route: 048
     Dates: start: 20200715, end: 20200715
  2. IXPRIM [Suspect]
     Active Substance: ACETAMINOPHEN\TRAMADOL HYDROCHLORIDE
     Indication: PAIN
     Dosage: 3 DF, TOTAL (37,5 MG/325 MG, COMPRIM? PELLICUL?)
     Route: 048
     Dates: start: 20200715, end: 20200715
  3. ACUPAN [Suspect]
     Active Substance: NEFOPAM HYDROCHLORIDE
     Indication: PAIN
     Dosage: 20 MG, TOTAL
     Route: 048
     Dates: start: 20200715, end: 20200715
  4. ALPRAZOLAM. [Suspect]
     Active Substance: ALPRAZOLAM
     Indication: PAIN
     Dosage: 0.5 MG, TOTAL
     Route: 048
     Dates: start: 20200715, end: 20200715

REACTIONS (1)
  - Respiratory depression [Recovered/Resolved]

NARRATIVE: CASE EVENT DATE: 20200715
